FAERS Safety Report 8408283-8 (Version None)
Quarter: 2012Q2

REPORT INFORMATION
  Report Type: 
  Country: None (occurrence: None)
  Receive Date: 20120604
  Receipt Date: 20120601
  Transmission Date: 20120825
  Serious: Yes (Other)
  Sender: FDA-Public Use
  Company Number: US-BAYER-2012-054518

PATIENT
  Age: 41 Year
  Sex: Female

DRUGS (2)
  1. MAGNEVIST [Suspect]
     Indication: NUCLEAR MAGNETIC RESONANCE IMAGING BRAIN
     Dosage: 20 ML, UNK
     Route: 042
     Dates: start: 20120531
  2. MAGNEVIST [Suspect]
     Indication: PITUITARY TUMOUR

REACTIONS (2)
  - TONGUE PRURITUS [None]
  - EAR PRURITUS [None]
